FAERS Safety Report 8481404-7 (Version None)
Quarter: 2012Q3

REPORT INFORMATION
  Report Type: 
  Country: None (occurrence: None)
  Receive Date: 20120702
  Receipt Date: 20120622
  Transmission Date: 20120928
  Serious: Yes (Hospitalization, Other)
  Sender: FDA-Public Use
  Company Number: US-BAYER-2011-075395

PATIENT
  Age: 32 Year
  Sex: Female
  Weight: 72.562 kg

DRUGS (2)
  1. YASMIN [Suspect]
     Dosage: UNK
     Dates: start: 20050101, end: 20070101
  2. MAXALT [Concomitant]
     Indication: HEADACHE
     Dosage: UNK
     Dates: start: 19990101, end: 20110101

REACTIONS (4)
  - INJURY [None]
  - RENAL INJURY [None]
  - PAIN [None]
  - GALLBLADDER INJURY [None]
